FAERS Safety Report 11866175 (Version 1)
Quarter: 2015Q4

REPORT INFORMATION
  Report Type: Spontaneous
  Country: US (occurrence: US)
  Receive Date: 20151223
  Receipt Date: 20151223
  Transmission Date: 20160305
  Serious: No
  Sender: FDA-Public Use
  Company Number: US-ACTELION PHARMACEUTICALS US, INC.-A-US2015-128896

PATIENT
  Age: 76 Year
  Sex: Male

DRUGS (3)
  1. TREPROSTINIL [Concomitant]
     Active Substance: TREPROSTINIL
     Dosage: 3 MG, TID
     Dates: start: 20151210
  2. TYVASO [Concomitant]
     Active Substance: TREPROSTINIL
  3. OPSUMIT [Suspect]
     Active Substance: MACITENTAN
     Indication: PULMONARY HYPERTENSION
     Dosage: 10 MG, UNK
     Route: 048
     Dates: start: 20140909

REACTIONS (4)
  - Vomiting [Unknown]
  - Asthenia [Unknown]
  - Headache [Unknown]
  - Nausea [Unknown]

NARRATIVE: CASE EVENT DATE: 20151210
